FAERS Safety Report 5052605-5 (Version None)
Quarter: 2006Q3

REPORT INFORMATION
  Report Type: 
  Country: None (occurrence: None)
  Receive Date: 20060717
  Receipt Date: 20060710
  Transmission Date: 20061208
  Serious: Yes (Other)
  Sender: FDA-Public Use
  Company Number: JP-JPN-A200602563

PATIENT
  Sex: Female

DRUGS (1)
  1. PAXIL [Suspect]
     Indication: PANIC ATTACK
     Route: 048
     Dates: start: 20050702, end: 20051227

REACTIONS (3)
  - AGGRESSION [None]
  - ANXIETY [None]
  - MOROSE [None]
